FAERS Safety Report 6680905-1 (Version None)
Quarter: 2010Q2

REPORT INFORMATION
  Report Type: 
  Country: None (occurrence: None)
  Receive Date: 20100414
  Receipt Date: 20100402
  Transmission Date: 20101027
  Serious: Yes (Other)
  Sender: FDA-Public Use
  Company Number: US-JNJFOC-20100301792

PATIENT
  Age: 52 Year
  Sex: Male
  Weight: 117.94 kg

DRUGS (2)
  1. TYLENOL [Suspect]
     Route: 048
  2. TYLENOL [Suspect]
     Indication: ARTHRITIS
     Dosage: STARTED PRODUCT IN JUN/JUL 2009; TOOK 4-6 TABLETS/DAY
     Route: 048

REACTIONS (10)
  - ABDOMINAL PAIN UPPER [None]
  - DIARRHOEA [None]
  - ECONOMIC PROBLEM [None]
  - IMPAIRED WORK ABILITY [None]
  - MALAISE [None]
  - MULTI-ORGAN DISORDER [None]
  - NAUSEA [None]
  - PRODUCT CONTAMINATION [None]
  - PRODUCT QUALITY ISSUE [None]
  - VOMITING [None]
